APPROVED DRUG PRODUCT: CATAFLAM
Active Ingredient: DICLOFENAC POTASSIUM
Strength: 50MG **Federal Register determination that product was not discontinued or withdrawn for safety or effectiveness reasons**
Dosage Form/Route: TABLET;ORAL
Application: N020142 | Product #002
Applicant: NOVARTIS PHARMACEUTICALS CORP
Approved: Nov 24, 1993 | RLD: Yes | RS: No | Type: DISCN